FAERS Safety Report 17829912 (Version 2)
Quarter: 2020Q2

REPORT INFORMATION
  Report Type: Not Available
  Country: JP (occurrence: JP)
  Receive Date: 20200527
  Receipt Date: 20200601
  Transmission Date: 20200714
  Serious: Yes (Hospitalization, Other)
  Sender: FDA-Public Use
  Company Number: JP-VISTAPHARM, INC.-VER202005-000978

PATIENT
  Age: 35 Year
  Sex: Female
  Weight: 55 kg

DRUGS (3)
  1. PREDNISOLONE. [Suspect]
     Active Substance: PREDNISOLONE
     Dosage: 10 MG ON ALTERNATE DAYS
  2. PREDNISOLONE. [Suspect]
     Active Substance: PREDNISOLONE
     Indication: GLOMERULONEPHRITIS MEMBRANOPROLIFERATIVE
     Dosage: 60 MG (2 MG/KG/DAY) FOR 4 WEEKS
  3. PREDNISOLONE. [Suspect]
     Active Substance: PREDNISOLONE
     Dosage: 15 MG ON ALTERNATE DAYS OVER 1 YEAR

REACTIONS (3)
  - Exposure during pregnancy [Unknown]
  - Abortion spontaneous [Not Recovered/Not Resolved]
  - Pre-eclampsia [Recovered/Resolved]
